FAERS Safety Report 8418842-4 (Version None)
Quarter: 2012Q2

REPORT INFORMATION
  Report Type: 
  Country: None (occurrence: None)
  Receive Date: 20120607
  Receipt Date: 20120530
  Transmission Date: 20120825
  Serious: No
  Sender: FDA-Public Use
  Company Number: US-ASTRAZENECA-2010SE48881

PATIENT
  Sex: Female

DRUGS (1)
  1. NEXIUM [Suspect]
     Indication: GASTROOESOPHAGEAL REFLUX DISEASE
     Dosage: DAILY
     Route: 048
     Dates: end: 20110101

REACTIONS (5)
  - OSTEOPOROSIS [None]
  - DRUG DOSE OMISSION [None]
  - INFLUENZA [None]
  - DYSPEPSIA [None]
  - MULTIPLE FRACTURES [None]
